FAERS Safety Report 9851019 (Version 1)
Quarter: 2014Q1

REPORT INFORMATION
  Report Type: Report from Study
  Country: AT (occurrence: AT)
  Receive Date: 20140128
  Receipt Date: 20140128
  Transmission Date: 20141002
  Serious: Yes (Death)
  Sender: FDA-Public Use
  Company Number: AT-MYLANLABS-2014S1001322

PATIENT
  Age: 81 Year
  Sex: Male

DRUGS (2)
  1. AZACITIDINE [Suspect]
     Indication: REFRACTORY ANAEMIA WITH AN EXCESS OF BLASTS
     Dosage: 130 MG/DAY, D1-7
     Route: 058
  2. GRANISETRON [Suspect]
     Indication: ANTIEMETIC SUPPORTIVE CARE
     Dosage: 2 MG/DAY
     Route: 065

REACTIONS (2)
  - Colitis ischaemic [Fatal]
  - Renal failure [Fatal]
